FAERS Safety Report 5683400-1 (Version None)
Quarter: 2008Q1

REPORT INFORMATION
  Report Type: 
  Country: None (occurrence: None)
  Receive Date: 20080327
  Receipt Date: 20080319
  Transmission Date: 20080703
  Serious: Yes (Life-Threatening)
  Sender: FDA-Public Use
  Company Number: GB-PFIZER INC-2008025761

PATIENT
  Sex: Female

DRUGS (2)
  1. LIPITOR [Suspect]
     Route: 048
  2. ANTIBIOTICS [Suspect]

REACTIONS (1)
  - APPARENT LIFE THREATENING EVENT [None]
